FAERS Safety Report 21875218 (Version 2)
Quarter: 2023Q1

REPORT INFORMATION
  Report Type: Report from Study
  Country: BE (occurrence: BE)
  Receive Date: 20230117
  Receipt Date: 20230228
  Transmission Date: 20230417
  Serious: Yes (Hospitalization, Other)
  Sender: FDA-Public Use
  Company Number: BE-ABBVIE-4237375

PATIENT

DRUGS (9)
  1. CARBIDOPA\LEVODOPA [Suspect]
     Active Substance: CARBIDOPA\LEVODOPA
     Indication: Parkinson^s disease
     Dosage: MD 10.0 ML; CD 2.6 ML/HR DURING 16 HOURS; ED 1.7 ML
     Route: 050
     Dates: start: 20221110, end: 20221121
  2. CARBIDOPA\LEVODOPA [Suspect]
     Active Substance: CARBIDOPA\LEVODOPA
     Dosage: MD 10.0 ML; CD 2.8 ML/HR DURING 16 HOURS; ED 2.1 ML
     Route: 050
     Dates: start: 20221128, end: 20221213
  3. CARBIDOPA\LEVODOPA [Suspect]
     Active Substance: CARBIDOPA\LEVODOPA
     Dosage: MD 10.0 ML; CD 2.6 ML/HR DURING 16 HOURS; ED 2.1 ML
     Route: 050
     Dates: start: 20221121, end: 20221128
  4. CARBIDOPA\LEVODOPA [Suspect]
     Active Substance: CARBIDOPA\LEVODOPA
     Dosage: MD 6.0 ML; CD 1.8 ML/HR DURING 16 HOURS; ED 2.1 ML/ EVENT ONSET DATE FOR DYSKINESIA AND WORRY SHO...
     Route: 050
     Dates: start: 20221107, end: 20221110
  5. CARBIDOPA\LEVODOPA [Suspect]
     Active Substance: CARBIDOPA\LEVODOPA
     Dosage: MD 10.0 ML; CD 2.0 ML/HR DURING 16 HOURS; ED 2.1 ML
     Route: 050
     Dates: start: 20221213, end: 20221227
  6. CARBIDOPA\LEVODOPA [Suspect]
     Active Substance: CARBIDOPA\LEVODOPA
     Dosage: MD 10.0 ML; CD 2.0 ML/HR DURING 16 HOURS; ED 2.1 ML
     Route: 050
     Dates: start: 20221227, end: 20230112
  7. CARBIDOPA\LEVODOPA [Suspect]
     Active Substance: CARBIDOPA\LEVODOPA
     Dosage: MD 6.0 ML; CD 1.8 ML/HR (AM), CD: 1.5 (PM) DURING 16 HOURS; ED 2.1 ML
     Route: 050
     Dates: start: 20230112, end: 20230223
  8. CARBIDOPA\LEVODOPA [Suspect]
     Active Substance: CARBIDOPA\LEVODOPA
     Dosage: MD 0.0 ML, CD 1.6 ML/H RUNNING AT 16H
     Route: 050
     Dates: start: 20230223
  9. AMANTADINE [Concomitant]
     Active Substance: AMANTADINE
     Indication: Product used for unknown indication

REACTIONS (7)
  - Depressed level of consciousness [Recovered/Resolved]
  - Dyskinesia [Recovering/Resolving]
  - Anxiety [Unknown]
  - Freezing phenomenon [Recovered/Resolved]
  - Disturbance in attention [Recovered/Resolved]
  - Therapeutic product effect delayed [Unknown]
  - Unevaluable event [Recovered/Resolved]
